FAERS Safety Report 12953451 (Version 3)
Quarter: 2017Q1

REPORT INFORMATION
  Report Type: Spontaneous
  Country: US (occurrence: US)
  Receive Date: 20161118
  Receipt Date: 20170314
  Transmission Date: 20170428
  Serious: Yes (Hospitalization, Other)
  Sender: FDA-Public Use
  Company Number: PHEH2016US029643

PATIENT
  Age: 63 Year
  Sex: Female

DRUGS (2)
  1. VOTRIENT [Suspect]
     Active Substance: PAZOPANIB HYDROCHLORIDE
     Indication: GENITOURINARY TRACT NEOPLASM
     Dosage: 4 DF, QD (200 MG)
     Route: 048
     Dates: start: 20161021
  2. FLUCONAZOLE. [Suspect]
     Active Substance: FLUCONAZOLE
     Indication: INFECTION
     Route: 065

REACTIONS (12)
  - Back pain [Unknown]
  - Malaise [Unknown]
  - Haemorrhage [Unknown]
  - Urinary tract infection [Unknown]
  - Tumour haemorrhage [Unknown]
  - Pain [Recovering/Resolving]
  - Dysmenorrhoea [Unknown]
  - Retching [Unknown]
  - Vomiting [Unknown]
  - Decreased appetite [Unknown]
  - Infection [Unknown]
  - Nausea [Not Recovered/Not Resolved]

NARRATIVE: CASE EVENT DATE: 20161109
